FAERS Safety Report 7857421-4 (Version None)
Quarter: 2011Q4

REPORT INFORMATION
  Report Type: 
  Country: None (occurrence: None)
  Receive Date: 20111027
  Receipt Date: 20080418
  Transmission Date: 20120403
  Serious: No
  Sender: FDA-Public Use
  Company Number: 2008BI010987

PATIENT
  Sex: Female

DRUGS (4)
  1. TYSABRI [Suspect]
     Indication: MULTIPLE SCLEROSIS
     Route: 042
     Dates: start: 20080208, end: 20080901
  2. VIVANCE (PRESUMED VYVANSE) [Concomitant]
     Indication: COGNITIVE DISORDER
     Dates: start: 20110701, end: 20110801
  3. VIVANCE (PRESUMED VYVANSE) [Concomitant]
     Indication: MEMORY IMPAIRMENT
     Dates: start: 20110701, end: 20110801
  4. TYSABRI [Suspect]
     Route: 042
     Dates: start: 20110401, end: 20110901

REACTIONS (7)
  - FATIGUE [None]
  - ARTHRALGIA [None]
  - MEMORY IMPAIRMENT [None]
  - ILL-DEFINED DISORDER [None]
  - SOMNOLENCE [None]
  - HYPERSOMNIA [None]
  - NUCLEAR MAGNETIC RESONANCE IMAGING ABNORMAL [None]
